FAERS Safety Report 21569082 (Version 1)
Quarter: 2022Q4

REPORT INFORMATION
  Report Type: Report from Study
  Country: US (occurrence: US)
  Receive Date: 20221109
  Receipt Date: 20221109
  Transmission Date: 20230112
  Serious: No
  Sender: FDA-Public Use
  Company Number: US-ABBVIE-22K-163-4385678-00

PATIENT
  Sex: Male

DRUGS (1)
  1. IMBRUVICA [Suspect]
     Active Substance: IBRUTINIB
     Indication: Chronic lymphocytic leukaemia
     Route: 048
     Dates: start: 202201

REACTIONS (10)
  - Hepatic steatosis [Unknown]
  - Frustration tolerance decreased [Unknown]
  - Increased tendency to bruise [Unknown]
  - Thrombosis [Unknown]
  - Skin discolouration [Unknown]
  - Drug specific antibody absent [Unknown]
  - Eye contusion [Unknown]
  - Pain [Unknown]
  - Contusion [Unknown]
  - Oral contusion [Unknown]
